FAERS Safety Report 16133122 (Version 3)
Quarter: 2020Q1

REPORT INFORMATION
  Report Type: Report from Study
  Country: CR (occurrence: CR)
  Receive Date: 20190329
  Receipt Date: 20200212
  Transmission Date: 20200409
  Serious: Yes (Other)
  Sender: FDA-Public Use
  Company Number: PHHY2019CR068232

PATIENT
  Age: 70 Year
  Sex: Female

DRUGS (2)
  1. SCAPHO [Suspect]
     Active Substance: SECUKINUMAB
     Indication: PSORIATIC ARTHROPATHY
     Dosage: 150 MG, UNK
     Route: 058
     Dates: start: 20181023
  2. SCAPHO [Suspect]
     Active Substance: SECUKINUMAB
     Dosage: UNK

REACTIONS (6)
  - Peripheral swelling [Unknown]
  - Laryngitis [Unknown]
  - Neck pain [Unknown]
  - Decreased immune responsiveness [Unknown]
  - Skin cancer [Unknown]
  - Papilloma viral infection [Unknown]
